FAERS Safety Report 16813106 (Version 1)
Quarter: 2019Q3

REPORT INFORMATION
  Report Type: Other
  Country: US (occurrence: US)
  Receive Date: 20190916
  Receipt Date: 20190916
  Transmission Date: 20191005
  Serious: No
  Sender: FDA-Public Use
  Company Number: US-LEADIANT BIOSCIENCES INC-2019STPI000101

PATIENT
  Sex: Male

DRUGS (6)
  1. KEPPRA [Concomitant]
     Active Substance: LEVETIRACETAM
  2. DEXAMETHASON                       /00016001/ [Concomitant]
     Active Substance: DEXAMETHASONE
  3. VIMPAT [Concomitant]
     Active Substance: LACOSAMIDE
  4. ELIQUIS [Concomitant]
     Active Substance: APIXABAN
  5. MATULANE [Suspect]
     Active Substance: PROCARBAZINE HYDROCHLORIDE
     Indication: BRAIN NEOPLASM MALIGNANT
     Dosage: 100MG, DAYS 8 TO 21
     Route: 048
     Dates: start: 20181002
  6. ONDASETRON                         /00955301/ [Concomitant]
     Active Substance: ONDANSETRON

REACTIONS (2)
  - Hepatic enzyme increased [Not Recovered/Not Resolved]
  - Nausea [Not Recovered/Not Resolved]
